FAERS Safety Report 24159720 (Version 1)
Quarter: 2024Q3

REPORT INFORMATION
  Report Type: Spontaneous
  Country: JP (occurrence: JP)
  Receive Date: 20240731
  Receipt Date: 20240731
  Transmission Date: 20241016
  Serious: Yes (Other)
  Sender: EISAI
  Company Number: JP-Eisai-202405278_LEN-TMC_P_1

PATIENT
  Sex: Male

DRUGS (9)
  1. LENVATINIB [Suspect]
     Active Substance: LENVATINIB
     Indication: Thymic carcinoma
     Route: 048
  2. LENVATINIB [Suspect]
     Active Substance: LENVATINIB
     Route: 048
  3. LENVATINIB [Suspect]
     Active Substance: LENVATINIB
     Route: 048
  4. LENVATINIB [Suspect]
     Active Substance: LENVATINIB
     Route: 048
  5. LENVATINIB [Suspect]
     Active Substance: LENVATINIB
     Route: 048
  6. LENVATINIB [Suspect]
     Active Substance: LENVATINIB
     Route: 048
  7. BISOPROLOL FUMARATE [Concomitant]
     Active Substance: BISOPROLOL FUMARATE
     Dosage: DOSE UNKNOWN
     Route: 065
  8. AZOSEMIDE [Concomitant]
     Active Substance: AZOSEMIDE
     Dosage: DOSE UNKNOWN
     Route: 065
  9. APIXABAN [Concomitant]
     Active Substance: APIXABAN
     Dosage: DOSE UNKNOWN
     Route: 065

REACTIONS (5)
  - Atrial fibrillation [Unknown]
  - Hypertension [Unknown]
  - Decreased appetite [Unknown]
  - Dyspepsia [Unknown]
  - Malaise [Unknown]
